FAERS Safety Report 5757367-1 (Version None)
Quarter: 2008Q2

REPORT INFORMATION
  Report Type: 
  Country: None (occurrence: None)
  Receive Date: 20080603
  Receipt Date: 20080523
  Transmission Date: 20081010
  Serious: Yes (Other)
  Sender: FDA-Public Use
  Company Number: US-BAYER-200811997BCC

PATIENT
  Sex: Female
  Weight: 91 kg

DRUGS (4)
  1. ASPIRIN [Suspect]
     Indication: DRUG USE FOR UNKNOWN INDICATION
     Route: 048
     Dates: start: 19780101
  2. LEVOXYL [Concomitant]
  3. LORAZEPAM [Concomitant]
  4. NITROGLYCERIN [Concomitant]

REACTIONS (2)
  - DRUG HYPERSENSITIVITY [None]
  - THROAT TIGHTNESS [None]
